FAERS Safety Report 8219074-5 (Version None)
Quarter: 2012Q1

REPORT INFORMATION
  Report Type: 
  Country: None (occurrence: None)
  Receive Date: 20120307
  Receipt Date: 20090618
  Transmission Date: 20120608
  Serious: Yes (Other)
  Sender: FDA-Public Use
  Company Number: PHEH2009US06439

PATIENT
  Age: 52 Year
  Sex: Male
  Weight: 79.8 kg

DRUGS (9)
  1. XANAX [Concomitant]
  2. AFINITOR [Suspect]
     Indication: CARCINOID TUMOUR
  3. LASIX [Concomitant]
  4. LISINOPRIL [Concomitant]
  5. SANDOSTATIN (SANDOSTATIN) [Concomitant]
  6. VICOPROFEN (HYDROCODONE, HYDROCODONE BITARTRATE, IBUPROFEN) [Concomitant]
  7. KLOR-CON [Concomitant]
  8. QUESTRAN [Concomitant]
  9. CREON (AMYLASE, LIPASE, PANCREATIN, PROTEASE) [Concomitant]

REACTIONS (1)
  - WHITE BLOOD CELL COUNT DECREASED [None]
